FAERS Safety Report 7983620-7 (Version None)
Quarter: 2011Q4

REPORT INFORMATION
  Report Type: 
  Country: None (occurrence: None)
  Receive Date: 20111215
  Receipt Date: 20111214
  Transmission Date: 20120403
  Serious: Yes (Other)
  Sender: FDA-Public Use
  Company Number: PHHY2011CN62617

PATIENT
  Sex: Female

DRUGS (2)
  1. SEBIVO [Suspect]
     Indication: HEPATITIS B
     Dosage: 1 DF, QD
     Route: 048
     Dates: start: 20110614, end: 20111130
  2. SHENGXUENING [Concomitant]
     Indication: ANAEMIA
     Dosage: 2 DF, TID
     Dates: start: 20110621, end: 20110625

REACTIONS (6)
  - DELIVERY [None]
  - HEPATIC STEATOSIS [None]
  - ALANINE AMINOTRANSFERASE INCREASED [None]
  - HEPATIC FUNCTION ABNORMAL [None]
  - ASPARTATE AMINOTRANSFERASE INCREASED [None]
  - MATERNAL EXPOSURE DURING PREGNANCY [None]
